FAERS Safety Report 18187859 (Version 1)
Quarter: 2020Q3

REPORT INFORMATION
  Report Type: Spontaneous
  Country: US (occurrence: US)
  Receive Date: 20200824
  Receipt Date: 20200824
  Transmission Date: 20201103
  Serious: No
  Sender: FDA-Public Use
  Company Number: US-CELLTRION INC.-2020US019319

PATIENT

DRUGS (1)
  1. INFLECTRA [Suspect]
     Active Substance: INFLIXIMAB-DYYB
     Indication: INFLAMMATORY BOWEL DISEASE
     Route: 065

REACTIONS (1)
  - Influenza like illness [Unknown]
